FAERS Safety Report 20118679 (Version 1)
Quarter: 2021Q4

REPORT INFORMATION
  Report Type: Spontaneous
  Country: NO (occurrence: NO)
  Receive Date: 20211126
  Receipt Date: 20211126
  Transmission Date: 20220303
  Serious: Yes (Death, Other)
  Sender: FDA-Public Use
  Company Number: None

PATIENT
  Age: 70 Year
  Sex: Female

DRUGS (5)
  1. OPDIVO [Suspect]
     Active Substance: NIVOLUMAB
     Indication: Metastatic malignant melanoma
     Dosage: 1 MILLIGRAM/KILOGRAM, Q3WK
     Route: 042
     Dates: start: 20201218, end: 20210219
  2. YERVOY [Suspect]
     Active Substance: IPILIMUMAB
     Indication: Metastatic malignant melanoma
     Dosage: 3 MILLIGRAM/KILOGRAM, Q3WK
     Route: 042
     Dates: start: 20201218, end: 20210219
  3. ELTROMBOPAG OLAMINE [Concomitant]
     Active Substance: ELTROMBOPAG OLAMINE
     Indication: Thrombocytopenia
     Dosage: 25 MILLIGRAM AS NECESSARY
     Route: 048
     Dates: start: 202105, end: 20210625
  4. NEUPOGEN [Concomitant]
     Active Substance: FILGRASTIM
     Indication: Neutropenia
     Dosage: UNK.ASNECESSARY
     Route: 042
     Dates: start: 202105, end: 20210625
  5. PREDNISOLONE [Concomitant]
     Active Substance: PREDNISOLONE
     Indication: Colitis
     Dosage: 80 MILLIGRAM,ASNECESSARY
     Route: 048
     Dates: start: 20210304, end: 20210625

REACTIONS (3)
  - Neutropenic sepsis [Fatal]
  - Thrombocytopenia [Fatal]
  - Neutropenia [Fatal]

NARRATIVE: CASE EVENT DATE: 20210414
